FAERS Safety Report 15676645 (Version 1)
Quarter: 2018Q4

REPORT INFORMATION
  Report Type: Spontaneous
  Country: US (occurrence: US)
  Receive Date: 20181130
  Receipt Date: 20181130
  Transmission Date: 20190205
  Serious: No
  Sender: FDA-Public Use
  Company Number: US-B. BRAUN MEDICAL INC.-2059472

PATIENT
  Age: 39 Year
  Sex: Female

DRUGS (1)
  1. LACTATED RINGERS SOLUTION [Suspect]
     Active Substance: CALCIUM CHLORIDE\POTASSIUM CHLORIDE\SODIUM CHLORIDE\SODIUM LACTATE

REACTIONS (3)
  - Erythema [Recovered/Resolved]
  - Pruritus [Recovered/Resolved]
  - Swelling [Recovered/Resolved]
